FAERS Safety Report 6316239-4 (Version None)
Quarter: 2009Q3

REPORT INFORMATION
  Report Type: 
  Country: None (occurrence: None)
  Receive Date: 20090820
  Receipt Date: 20090811
  Transmission Date: 20100115
  Serious: Yes (Other)
  Sender: FDA-Public Use
  Company Number: HQWYE269113AUG04

PATIENT
  Sex: Female

DRUGS (3)
  1. PREMPRO [Suspect]
     Indication: HORMONE REPLACEMENT THERAPY
     Dosage: UNSPECIFIED DOSAGE
     Route: 048
     Dates: start: 19911217, end: 19920713
  2. PROMETRIUM [Suspect]
  3. ESTRADIOL [Suspect]

REACTIONS (1)
  - BREAST CANCER RECURRENT [None]
